FAERS Safety Report 24730371 (Version 1)
Quarter: 2024Q4

REPORT INFORMATION
  Report Type: Spontaneous
  Country: IT (occurrence: IT)
  Receive Date: 20241213
  Receipt Date: 20241213
  Transmission Date: 20250114
  Serious: Yes (Hospitalization)
  Sender: ORGANON
  Company Number: None

PATIENT
  Age: 22 Year
  Sex: Female
  Weight: 57 kg

DRUGS (1)
  1. NUVARING [Suspect]
     Active Substance: ETHINYL ESTRADIOL\ETONOGESTREL
     Dosage: UNK
     Dates: start: 202111, end: 202211

REACTIONS (4)
  - Sciatic nerve neuropathy [Recovered/Resolved with Sequelae]
  - Varicocele [Recovered/Resolved with Sequelae]
  - May-Thurner syndrome [Recovered/Resolved with Sequelae]
  - Iliac vein occlusion [Recovered/Resolved with Sequelae]

NARRATIVE: CASE EVENT DATE: 20211101
